FAERS Safety Report 10890594 (Version 2)
Quarter: 2015Q1

REPORT INFORMATION
  Report Type: Report from Study
  Country: CA (occurrence: CA)
  Receive Date: 20150305
  Receipt Date: 20150310
  Transmission Date: 20150721
  Serious: Yes (Hospitalization)
  Sender: FDA-Public Use
  Company Number: CA-JNJFOC-20140703431

PATIENT
  Age: 34 Year
  Sex: Female
  Weight: 43 kg

DRUGS (2)
  1. REMICADE [Suspect]
     Active Substance: INFLIXIMAB
     Indication: CROHN^S DISEASE
     Route: 042
     Dates: start: 20131114
  2. REMICADE [Suspect]
     Active Substance: INFLIXIMAB
     Indication: CROHN^S DISEASE
     Route: 042
     Dates: start: 20140415

REACTIONS (7)
  - Induration [Recovered/Resolved]
  - Intestinal operation [Recovered/Resolved]
  - Irritability [Recovered/Resolved]
  - Secretion discharge [Recovered/Resolved]
  - Wound complication [Recovered/Resolved]
  - Post procedural complication [Recovered/Resolved]
  - Ileostomy closure [Recovered/Resolved]

NARRATIVE: CASE EVENT DATE: 2014
